FAERS Safety Report 4467670-3 (Version None)
Quarter: 2004Q4

REPORT INFORMATION
  Report Type: 
  Country: None (occurrence: None)
  Receive Date: 20041001
  Receipt Date: 20040924
  Transmission Date: 20050328
  Serious: No
  Sender: FDA-Public Use
  Company Number: 2004UW20168

PATIENT
  Age: 38 Year
  Sex: Male
  Weight: 131.5431 kg

DRUGS (6)
  1. NEXIUM [Suspect]
     Indication: GASTROOESOPHAGEAL REFLUX DISEASE
     Dosage: 40 MG PO
     Route: 048
     Dates: start: 20040701
  2. DILANTIN [Concomitant]
  3. TOPAMAX [Concomitant]
  4. CARAFATE [Concomitant]
  5. LISINOPRIL [Concomitant]
  6. RAMIPRIL [Concomitant]

REACTIONS (2)
  - GASTROINTESTINAL HAEMORRHAGE [None]
  - HAEMATEMESIS [None]
